FAERS Safety Report 7159819-9 (Version None)
Quarter: 2010Q4

REPORT INFORMATION
  Report Type: 
  Country: None (occurrence: None)
  Receive Date: 20101214
  Receipt Date: 20101005
  Transmission Date: 20110411
  Serious: No
  Sender: FDA-Public Use
  Company Number: US-ASTRAZENECA-2010SE47007

PATIENT
  Sex: Male

DRUGS (3)
  1. CRESTOR [Suspect]
     Route: 048
     Dates: start: 20100601
  2. LIPITOR [Suspect]
     Route: 065
  3. BENICAR [Concomitant]
     Indication: HYPERTENSION

REACTIONS (2)
  - BACK PAIN [None]
  - TENDONITIS [None]
